FAERS Safety Report 12482742 (Version 6)
Quarter: 2018Q1

REPORT INFORMATION
  Report Type: Report from Study
  Country: IN (occurrence: IN)
  Receive Date: 20160620
  Receipt Date: 20180122
  Transmission Date: 20180508
  Serious: Yes (Hospitalization)
  Sender: FDA-Public Use
  Company Number: IN-PFIZER INC-2016287728

PATIENT
  Age: 40 Year
  Sex: Male
  Weight: 65.5 kg

DRUGS (5)
  1. CARBOPLATIN. [Suspect]
     Active Substance: CARBOPLATIN
     Dosage: 653.52 MG, EVERY 21 DAYS
     Route: 042
     Dates: start: 20160531
  2. CARBOPLATIN. [Suspect]
     Active Substance: CARBOPLATIN
     Indication: LUNG CANCER METASTATIC
     Dosage: 900 MG, EVERY 21 DAYS
     Route: 042
     Dates: start: 20160509
  3. BEVACIZUMAB. [Suspect]
     Active Substance: BEVACIZUMAB
     Indication: NON-SMALL CELL LUNG CANCER
     Dosage: 990 MG, EVERY 21 DAYS
     Route: 042
     Dates: start: 20170509
  4. PACLITAXEL. [Suspect]
     Active Substance: PACLITAXEL
     Indication: LUNG CANCER METASTATIC
     Dosage: 344 MG, EVERY 21 DAYS
     Route: 042
     Dates: start: 20160509
  5. PACLITAXEL. [Suspect]
     Active Substance: PACLITAXEL
     Dosage: 344 MG, (200MG/KG) EVERY 21 DAYS
     Route: 042
     Dates: start: 20160531

REACTIONS (1)
  - Neutropenic colitis [Recovered/Resolved]

NARRATIVE: CASE EVENT DATE: 20160605
